FAERS Safety Report 5259940-6 (Version None)
Quarter: 2007Q1

REPORT INFORMATION
  Report Type: 
  Country: None (occurrence: None)
  Receive Date: 20070309
  Receipt Date: 20070308
  Transmission Date: 20070707
  Serious: Yes (Death, Hospitalization)
  Sender: FDA-Public Use
  Company Number: FR-GLAXOSMITHKLINE-B0454679A

PATIENT
  Age: 87 Year
  Sex: Male

DRUGS (7)
  1. ARIXTRA [Suspect]
     Dosage: 7.5MG PER DAY
     Route: 058
     Dates: start: 20061225, end: 20061229
  2. SYMBICORT [Concomitant]
     Dosage: 2PUFF PER DAY
  3. LASIX [Concomitant]
  4. CORDARONE [Concomitant]
  5. DIGOXIN [Concomitant]
  6. ATACAND [Concomitant]
  7. FLUINDIONE [Concomitant]

REACTIONS (9)
  - ANAEMIA [None]
  - GENERAL PHYSICAL HEALTH DETERIORATION [None]
  - HAEMATURIA [None]
  - HAEMORRHAGE [None]
  - OFF LABEL USE [None]
  - OLIGURIA [None]
  - RENAL FAILURE [None]
  - SHOCK [None]
  - SHOCK HAEMORRHAGIC [None]
